FAERS Safety Report 21809919 (Version 3)
Quarter: 2023Q2

REPORT INFORMATION
  Report Type: Report from Study
  Country: US (occurrence: US)
  Receive Date: 20230103
  Receipt Date: 20230505
  Transmission Date: 20230722
  Serious: Yes (Other)
  Sender: FDA-Public Use
  Company Number: US-ABBVIE-4255549

PATIENT
  Sex: Male

DRUGS (2)
  1. VENCLEXTA [Suspect]
     Active Substance: VENETOCLAX
     Indication: Acute myeloid leukaemia
     Dosage: FORM STRENGTH WAS100 MILLIGRAMS?TOOK 1 TABLET BY MOUTH ONCE DAILY WITH FOOD AND A FULL GLASS OF W...
     Route: 048
     Dates: end: 20230327
  2. VENCLEXTA [Suspect]
     Active Substance: VENETOCLAX
     Indication: Acute myeloid leukaemia
     Dosage: FORM STRENGTH WAS100 MILLIGRAMS?FIRST AND LAST ADMIN DATE:2023?TOOK 1 TABLET BY MOUTH ONCE DAILY ...
     Route: 048

REACTIONS (6)
  - Full blood count abnormal [Not Recovered/Not Resolved]
  - Cough [Recovering/Resolving]
  - Dyspnoea [Recovering/Resolving]
  - Insomnia [Recovering/Resolving]
  - Laboratory test abnormal [Not Recovered/Not Resolved]
  - Full blood count abnormal [Not Recovered/Not Resolved]

NARRATIVE: CASE EVENT DATE: 20220101
